FAERS Safety Report 5052191-X (Version None)
Quarter: 2006Q3

REPORT INFORMATION
  Report Type: 
  Country: None (occurrence: None)
  Receive Date: 20060714
  Receipt Date: 20060714
  Transmission Date: 20061208
  Serious: Yes (Other)
  Sender: FDA-Public Use
  Company Number: None

PATIENT
  Age: 70 Year
  Sex: Female
  Weight: 83.9154 kg

DRUGS (3)
  1. DEXAMETHASONE TAB [Suspect]
     Indication: OSTEOARTHRITIS
     Dates: start: 20060711, end: 20060711
  2. LIDOCAINE [Suspect]
  3. MARCAINE [Suspect]

REACTIONS (2)
  - RASH ERYTHEMATOUS [None]
  - RASH GENERALISED [None]
